FAERS Safety Report 8473639-4 (Version None)
Quarter: 2012Q2

REPORT INFORMATION
  Report Type: 
  Country: None (occurrence: None)
  Receive Date: 20120628
  Receipt Date: 20110729
  Transmission Date: 20120825
  Serious: Yes (Death, Other)
  Sender: FDA-Public Use
  Company Number: US-MYLANLABS-2011S1015612

PATIENT
  Age: 58 Year
  Sex: Female

DRUGS (10)
  1. AVELOX [Concomitant]
  2. HUMALOG [Concomitant]
  3. SIMVASTATIN [Concomitant]
  4. SYNTHROID [Concomitant]
  5. FLOVENT [Concomitant]
  6. LITHIUM CARBONATE [Concomitant]
  7. POTASSIUM CHLORIDE [Concomitant]
  8. COUMADIN [Concomitant]
  9. JANUVIA [Concomitant]
  10. CLOZAPINE [Suspect]
     Route: 048

REACTIONS (1)
  - DEATH [None]
